FAERS Safety Report 4869723-4 (Version None)
Quarter: 2005Q4

REPORT INFORMATION
  Report Type: 
  Country: None (occurrence: None)
  Receive Date: 20051230
  Receipt Date: 20051215
  Transmission Date: 20060501
  Serious: Yes (Other)
  Sender: FDA-Public Use
  Company Number: CA-BOEHRINGER INGELHEIM PHARMACEUTICALS, INC.-2005-DE-05504GD

PATIENT

DRUGS (9)
  1. CLONIDINE [Suspect]
     Indication: ANALGESIC EFFECT
     Dosage: EPIDURAL SOLUTION WITH CLONIDINE 0.6 MCG/ML STARTED AT A RATE OF 10 ML/H AND THEN ADJUSTED TO 6-14 M
     Route: 008
  2. BUPIVACAINE [Suspect]
     Indication: ANALGESIC EFFECT
     Dosage: BOLUS (4-8 ML ) OF BUPIVACAINE 0.25% 15 MIN BEFORE SKIN INCISION AND 15 MIN BEFORE EXTUBATION
  3. BUPIVACAINE [Suspect]
     Dosage: EPIDURAL SOLUTION OF 0.125% BUPIVACAINE STARTED AT A RATE OF 10 ML/H AND THEN ADJUSTED TO 6-14 ML/H
     Route: 008
  4. FENTANYL [Concomitant]
     Indication: ANAESTHESIA
     Dosage: 3 MCG/KG
  5. PROPOFOL [Concomitant]
     Indication: ANAESTHESIA
     Dosage: 1-2 MG/KG
  6. ROCURONIUM [Concomitant]
     Indication: INTUBATION
     Dosage: 0.6 MG/KG
  7. SEVOFLURANE [Concomitant]
     Indication: MAINTENANCE OF ANAESTHESIA
  8. LACTATED RINGER'S [Concomitant]
     Dosage: 6-10 ML/KG/H
  9. HEPARIN [Concomitant]
     Dosage: 150 IU/KG BEFORE ISCHEMIA

REACTIONS (2)
  - MYOCARDIAL INFARCTION [None]
  - POST PROCEDURAL COMPLICATION [None]
